FAERS Safety Report 8776238 (Version 1)
Quarter: 2012Q4

REPORT INFORMATION
  Report Type: 
  Country: US (occurrence: US)
  Receive Date: 20120910
  Receipt Date: 20120910
  Transmission Date: 20130627
  Serious: Yes (Death, Hospitalization, Other)
  Sender: FDA-Public Use
  Company Number: US-JNJFOC-20120901522

PATIENT
  Age: 82 None
  Sex: Male

DRUGS (13)
  1. LEVAQUIN [Suspect]
     Indication: BRONCHITIS
     Route: 065
     Dates: start: 201203, end: 201203
  2. DALIRESP [Suspect]
     Indication: CHRONIC OBSTRUCTIVE PULMONARY DISEASE
     Route: 048
     Dates: start: 20111128, end: 20120430
  3. SIMVASTATIN [Suspect]
     Indication: BLOOD CHOLESTEROL INCREASED
     Route: 065
     Dates: end: 201204
  4. ALLOPURINOL [Concomitant]
     Indication: NEPHROLITHIASIS
     Route: 065
  5. ASMANEX [Concomitant]
     Route: 065
  6. SPIRIVA [Concomitant]
     Route: 065
  7. ALBUTEROL [Concomitant]
     Route: 065
  8. FORADIL [Concomitant]
     Route: 065
  9. VITAMIN C [Concomitant]
     Route: 065
  10. VITAMIN D [Concomitant]
     Route: 065
  11. VITAMINE E [Concomitant]
     Route: 065
  12. ASPIRIN [Concomitant]
     Route: 065
  13. CENTRUM SILVER [Concomitant]
     Route: 065

REACTIONS (10)
  - Sepsis [Fatal]
  - Fall [Unknown]
  - Spinal compression fracture [Unknown]
  - Pneumonia [Unknown]
  - Atrial fibrillation [Unknown]
  - Gastrooesophageal reflux disease [Unknown]
  - Swelling face [Unknown]
  - Frequent bowel movements [Unknown]
  - Oedema peripheral [Unknown]
  - Muscular weakness [Unknown]
